FAERS Safety Report 6783972-X (Version None)
Quarter: 2010Q2

REPORT INFORMATION
  Report Type: 
  Country: None (occurrence: None)
  Receive Date: 20100622
  Receipt Date: 20091117
  Transmission Date: 20101027
  Serious: No
  Sender: FDA-Public Use
  Company Number: US-BRISTOL-MYERS SQUIBB COMPANY-14862239

PATIENT

DRUGS (1)
  1. SINEMET [Suspect]

REACTIONS (1)
  - DYSGEUSIA [None]
